FAERS Safety Report 4879247-6 (Version None)
Quarter: 2005Q4

REPORT INFORMATION
  Report Type: 
  Country: None (occurrence: None)
  Receive Date: 20051205
  Receipt Date: 20050406
  Transmission Date: 20060501
  Serious: Yes (Hospitalization)
  Sender: FDA-Public Use
  Company Number: 2005-127183-NL

PATIENT
  Age: 43 Year
  Sex: Female
  Weight: 84.1 kg

DRUGS (1)
  1. NUVARING [Suspect]
     Indication: CONTRACEPTION
     Dosage: VAGINAL
     Route: 067
     Dates: start: 20040804, end: 20041201

REACTIONS (1)
  - SUPERIOR SAGITTAL SINUS THROMBOSIS [None]
